FAERS Safety Report 7028166-8 (Version None)
Quarter: 2010Q3

REPORT INFORMATION
  Report Type: 
  Country: None (occurrence: None)
  Receive Date: 20100930
  Receipt Date: 20100917
  Transmission Date: 20110219
  Serious: Yes (Other)
  Sender: FDA-Public Use
  Company Number: US-001302

PATIENT
  Sex: Male

DRUGS (1)
  1. KUVAN [Suspect]
     Dosage: ORAL
     Route: 048

REACTIONS (2)
  - COLITIS ULCERATIVE [None]
  - TREATMENT NONCOMPLIANCE [None]
